FAERS Safety Report 5739608-X (Version None)
Quarter: 2008Q2

REPORT INFORMATION
  Report Type: 
  Country: None (occurrence: None)
  Receive Date: 20080513
  Receipt Date: 20080428
  Transmission Date: 20081010
  Serious: Yes (Hospitalization)
  Sender: FDA-Public Use
  Company Number: CIP08000763

PATIENT
  Age: 79 Year
  Sex: Female

DRUGS (4)
  1. RISEDRONATE SODIUM [Suspect]
     Indication: OSTEOPOROSIS
     Dosage: 2.5 MG DAILY, ORAL
     Route: 048
     Dates: start: 20070803, end: 20070911
  2. LORCAM (LOMOXICAM) [Concomitant]
  3. MYONAL (EPIRIZOLE HYDROCHLORIDE) [Concomitant]
  4. TEPRENONE (TEPRENONE) [Concomitant]

REACTIONS (5)
  - ANAEMIA [None]
  - ANOREXIA [None]
  - FATIGUE [None]
  - NEPHRITIS [None]
  - RHEUMATOID ARTHRITIS [None]
